FAERS Safety Report 8080800-X (Version None)
Quarter: 2012Q1

REPORT INFORMATION
  Report Type: 
  Country: None (occurrence: None)
  Receive Date: 20120130
  Receipt Date: 20120124
  Transmission Date: 20120608
  Serious: Yes (Death, Other)
  Sender: FDA-Public Use
  Company Number: GB-ROCHE-1032057

PATIENT
  Sex: Female

DRUGS (8)
  1. PERINDOPRIL ERBUMINE [Concomitant]
  2. DIGOXIN [Concomitant]
  3. LUCENTIS [Suspect]
     Indication: PRODUCT USED FOR UNKNOWN INDICATION
     Route: 050
  4. FUROSEMIDE [Concomitant]
  5. LEVOTHYROXINE SODIUM [Concomitant]
  6. ALENDRONIC ACID [Concomitant]
  7. ADCAL - D3 [Concomitant]
  8. ASPIRIN [Concomitant]

REACTIONS (5)
  - CARDIAC DEATH [None]
  - DEATH [None]
  - DYSPNOEA [None]
  - MYOCARDIAL ISCHAEMIA [None]
  - SPINAL COMPRESSION FRACTURE [None]
